FAERS Safety Report 4554012-8 (Version None)
Quarter: 2005Q1

REPORT INFORMATION
  Report Type: 
  Country: None (occurrence: None)
  Receive Date: 20050118
  Receipt Date: 20050106
  Transmission Date: 20050727
  Serious: Yes (Death, Hospitalization)
  Sender: FDA-Public Use
  Company Number: US-ROCHE-391801

PATIENT
  Age: 85 Year
  Sex: Female

DRUGS (4)
  1. ROCEPHIN [Suspect]
     Indication: CELLULITIS
     Dosage: DOSE TAKEN VIA INTRAMUSCULAR ROUTE.
     Route: 050
  2. ROCEPHIN [Suspect]
     Dosage: DOSE TAKEN VIA INTRAVENOUS ROUTE.
     Route: 050
  3. LEVAQUIN [Concomitant]
     Indication: CELLULITIS
     Route: 048
  4. VANCOMYCIN [Concomitant]
     Indication: CELLULITIS

REACTIONS (5)
  - DEATH [None]
  - NO REACTION ON PREVIOUS EXPOSURE TO DRUG [None]
  - PRURITUS [None]
  - RENAL FAILURE [None]
  - STEVENS-JOHNSON SYNDROME [None]
